FAERS Safety Report 9645375 (Version 1)
Quarter: 2013Q4

REPORT INFORMATION
  Report Type: Spontaneous
  Country: US (occurrence: US)
  Receive Date: 20131025
  Receipt Date: 20131025
  Transmission Date: 20140711
  Serious: Yes (Hospitalization, Other)
  Sender: FDA-Public Use
  Company Number: US-ABBVIE-13P-163-1159229-00

PATIENT
  Age: 56 Year
  Sex: Male
  Weight: 88.98 kg

DRUGS (3)
  1. HUMIRA [Suspect]
     Indication: CROHN^S DISEASE
  2. HUMIRA [Suspect]
     Dates: end: 20130924
  3. IMURAN [Concomitant]
     Indication: CROHN^S DISEASE

REACTIONS (4)
  - Pulmonary mass [Unknown]
  - Pulmonary mass [Unknown]
  - Lung infection [Unknown]
  - Histoplasmosis [Not Recovered/Not Resolved]
